FAERS Safety Report 6391645-0 (Version None)
Quarter: 2009Q4

REPORT INFORMATION
  Report Type: 
  Country: None (occurrence: None)
  Receive Date: 20091007
  Receipt Date: 20090923
  Transmission Date: 20100525
  Serious: Yes (Other)
  Sender: FDA-Public Use
  Company Number: US-PFIZER INC-2009274341

PATIENT
  Sex: Male

DRUGS (11)
  1. CHANTIX [Suspect]
     Indication: SMOKING CESSATION THERAPY
     Dosage: UNK
     Dates: start: 20090101, end: 20090710
  2. CAFFEINE [Suspect]
     Dosage: UNK
  3. CELEXA [Concomitant]
     Indication: DEPRESSION
     Dosage: 40 MG, UNK
  4. NEURONTIN [Concomitant]
     Dosage: 2000 MG, 1X/DAY
  5. ZOCOR [Concomitant]
     Indication: BLOOD CHOLESTEROL INCREASED
     Dosage: UNK
  6. VALSARTAN [Concomitant]
     Indication: PROPHYLAXIS
     Dosage: UNK
  7. AVANDIA [Concomitant]
     Indication: DIABETES MELLITUS
     Dosage: UNK
  8. MAXZIDE [Concomitant]
     Indication: FLUID RETENTION
     Dosage: UNK
  9. COGENTIN [Concomitant]
     Dosage: UNK
  10. ARTANE [Concomitant]
     Dosage: UNK
  11. HALOPERIDOL [Concomitant]
     Dosage: UNK

REACTIONS (2)
  - INFLAMMATION [None]
  - SCHIZOAFFECTIVE DISORDER [None]
